FAERS Safety Report 13533195 (Version 2)
Quarter: 2017Q3

REPORT INFORMATION
  Report Type: Report from Study
  Country: CA (occurrence: CA)
  Receive Date: 20170510
  Receipt Date: 20170713
  Transmission Date: 20171127
  Serious: Yes (Other)
  Sender: FDA-Public Use
  Company Number: CA-JNJFOC-20170506718

PATIENT
  Sex: Female
  Weight: 63.5 kg

DRUGS (4)
  1. REMICADE [Suspect]
     Active Substance: INFLIXIMAB
     Indication: COLITIS ULCERATIVE
     Route: 042
     Dates: start: 2007
  2. PREDNISONE. [Concomitant]
     Active Substance: PREDNISONE
     Route: 048
  3. VITAMIN D [Concomitant]
     Active Substance: CHOLECALCIFEROL
     Route: 065
  4. PREDNISONE. [Concomitant]
     Active Substance: PREDNISONE
     Route: 048

REACTIONS (4)
  - Salmonellosis [Recovering/Resolving]
  - Off label use [Unknown]
  - Product use issue [Unknown]
  - Colitis ulcerative [Recovering/Resolving]

NARRATIVE: CASE EVENT DATE: 2007
